FAERS Safety Report 18003015 (Version 4)
Quarter: 2022Q3

REPORT INFORMATION
  Report Type: Spontaneous
  Country: US (occurrence: US)
  Receive Date: 20200710
  Receipt Date: 20220926
  Transmission Date: 20221027
  Serious: Yes (Other)
  Sender: FDA-Public Use
  Company Number: US-SAARTEMIS-SAC202007060142

PATIENT
  Age: 50 Year
  Sex: Male

DRUGS (1)
  1. ZANTAC [Suspect]
     Active Substance: RANITIDINE HYDROCHLORIDE
     Indication: Dyspepsia
     Dosage: 150 MG, QD
     Dates: start: 200601, end: 202002

REACTIONS (4)
  - Non-Hodgkin^s lymphoma [Unknown]
  - Gastrointestinal carcinoma [Unknown]
  - Small intestine carcinoma [Unknown]
  - Colon cancer [Unknown]

NARRATIVE: CASE EVENT DATE: 20170301
